FAERS Safety Report 24145863 (Version 1)
Quarter: 2024Q3

REPORT INFORMATION
  Report Type: Spontaneous
  Country: GB (occurrence: GB)
  Receive Date: 20240729
  Receipt Date: 20240729
  Transmission Date: 20241016
  Serious: Yes (Other)
  Sender: AUROBINDO
  Company Number: GB-MHRA-MIDB-12cf47a7-7140-475f-b81e-a5d07502392c

PATIENT
  Age: 33 Year
  Sex: Male

DRUGS (9)
  1. LINEZOLID [Suspect]
     Active Substance: LINEZOLID
     Indication: Product used for unknown indication
     Dosage: 600 MILLIGRAM, ONCE A DAY (MORNING)
     Route: 065
  2. CLOFAZIMINE [Suspect]
     Active Substance: CLOFAZIMINE
     Indication: Product used for unknown indication
     Dosage: 100 MILLIGRAM, ONCE A DAY (TWO MORNING)
     Route: 065
  3. LEVOFLOXACIN [Suspect]
     Active Substance: LEVOFLOXACIN
     Indication: Product used for unknown indication
     Dosage: 500 MILLIGRAM, ONCE A DAY (MORNING)
     Route: 065
  4. PYRIDOXINE [Concomitant]
     Active Substance: PYRIDOXINE
     Indication: Product used for unknown indication
     Dosage: 50 MILLIGRAM (ONE TWICE A DAY MORNING AND TEATIME)
     Route: 065
  5. BEDAQUILINE [Concomitant]
     Active Substance: BEDAQUILINE
     Indication: Product used for unknown indication
     Dosage: UNK (BEDAQUILINE 100MG TABLETS 400MG AT TEATIME UNTIL 16/11/23 THEN 200MG THREE TIMES A WEEK ON MOND
     Route: 065
  6. DEXAMETHASONE [Concomitant]
     Active Substance: DEXAMETHASONE
     Indication: Product used for unknown indication
     Dosage: UNK (DEXAMETASONE 4MG TWICE A DAY MORNING AND LUNCHTIME FOR 4 DAYS THEN 4MG MORNING FOR 7 DAYS THEN
     Route: 065
  7. ACETAMINOPHEN [Concomitant]
     Active Substance: ACETAMINOPHEN
     Indication: Product used for unknown indication
     Dosage: 1000 MILLIGRAM (500MG TABLETS. TWO FOUR TIMES A DAY WHEN REQUIRED)
     Route: 065
  8. LANSOPRAZOLE [Concomitant]
     Active Substance: LANSOPRAZOLE
     Indication: Product used for unknown indication
     Dosage: 30 MILLIGRAM, ONCE A DAY (MORNING)
     Route: 065
  9. CYCLOSERINE [Concomitant]
     Active Substance: CYCLOSERINE
     Indication: Product used for unknown indication
     Dosage: 250 MILLIGRAM
     Route: 065

REACTIONS (2)
  - Drug-induced liver injury [Recovered/Resolved]
  - Liver function test abnormal [Unknown]
